FAERS Safety Report 21596369 (Version 1)
Quarter: 2022Q4

REPORT INFORMATION
  Report Type: Spontaneous
  Country: JP (occurrence: JP)
  Receive Date: 20221115
  Receipt Date: 20221115
  Transmission Date: 20230113
  Serious: Yes (Death, Other)
  Sender: FDA-Public Use
  Company Number: JP-ABBVIE-4200845

PATIENT

DRUGS (2)
  1. VENCLEXTA [Suspect]
     Active Substance: VENETOCLAX
     Indication: Acute myeloid leukaemia
     Route: 048
  2. AZACITIDINE [Concomitant]
     Active Substance: AZACITIDINE
     Indication: Acute myeloid leukaemia

REACTIONS (6)
  - Death [Fatal]
  - Infection [Unknown]
  - Myelosuppression [Unknown]
  - Acute myeloid leukaemia recurrent [Unknown]
  - White blood cell count decreased [Unknown]
  - Pneumonia [Unknown]
